FAERS Safety Report 13828172 (Version 1)
Quarter: 2017Q3

REPORT INFORMATION
  Report Type: Spontaneous
  Country: US (occurrence: US)
  Receive Date: 20170802
  Receipt Date: 20170802
  Transmission Date: 20171127
  Serious: No
  Sender: FDA-Public Use
  Company Number: None

PATIENT
  Age: 48 Year
  Sex: Male

DRUGS (1)
  1. HARVONI [Suspect]
     Active Substance: LEDIPASVIR\SOFOSBUVIR
     Dosage: 90-400 QD PO
     Route: 048
     Dates: start: 20170711

REACTIONS (3)
  - Nausea [None]
  - Vomiting [None]
  - Influenza like illness [None]

NARRATIVE: CASE EVENT DATE: 20170712
